FAERS Safety Report 12614470 (Version 1)
Quarter: 2016Q3

REPORT INFORMATION
  Report Type: Report from Study
  Country: US (occurrence: US)
  Receive Date: 20160802
  Receipt Date: 20160802
  Transmission Date: 20161109
  Serious: Yes (Hospitalization, Other)
  Sender: FDA-Public Use
  Company Number: US-ALEXION PHARMACEUTICALS INC-A201605483

PATIENT
  Sex: Male

DRUGS (1)
  1. SOLIRIS [Suspect]
     Active Substance: ECULIZUMAB
     Indication: PAROXYSMAL NOCTURNAL HAEMOGLOBINURIA
     Dosage: UNK, Q2W
     Route: 042

REACTIONS (5)
  - Full blood count decreased [Recovering/Resolving]
  - Diarrhoea [Unknown]
  - Spleen disorder [Unknown]
  - Blood iron increased [Unknown]
  - Gastrointestinal bacterial infection [Unknown]

NARRATIVE: CASE EVENT DATE: 20160719
